FAERS Safety Report 24386157 (Version 2)
Quarter: 2024Q4

REPORT INFORMATION
  Report Type: Spontaneous
  Country: US (occurrence: US)
  Receive Date: 20241001
  Receipt Date: 20241112
  Transmission Date: 20250115
  Serious: Yes (Hospitalization)
  Sender: CHIESI
  Company Number: US-CHIESI USA, INC.-2024CHF06332

PATIENT
  Age: 4 Year
  Sex: Male

DRUGS (1)
  1. REVCOVI [Suspect]
     Active Substance: ELAPEGADEMASE-LVLR
     Indication: Combined immunodeficiency
     Dosage: 3.1 MILLIMETRE, 2 X PER WEEK
     Route: 030
     Dates: start: 20210713

REACTIONS (1)
  - Bone marrow transplant [Recovered/Resolved]

NARRATIVE: CASE EVENT DATE: 20240920
